FAERS Safety Report 8161306 (Version 4)
Quarter: 2013Q2

REPORT INFORMATION
  Report Type: Report from Study
  Country: US (occurrence: US)
  Receive Date: 20110929
  Receipt Date: 20130402
  Transmission Date: 20140414
  Serious: Yes (Other)
  Sender: FDA-Public Use
  Company Number: US-UCBSA-042073

PATIENT
  Age: 0 None
  Sex: Female
  Weight: .8 kg

DRUGS (5)
  1. KEPPRA [Suspect]
     Indication: EPILEPSY
     Dosage: DAILY DOSE: 1500 MG
     Route: 064
     Dates: start: 20101209, end: 20110123
  2. LEVETIRACETAM [Suspect]
     Indication: CONVULSION
     Dosage: DAILY DOSE: 1000 MG
     Route: 064
     Dates: end: 20101208
  3. PRENATAL VITAMINS [Concomitant]
     Indication: PREGNANCY
     Dosage: 1 PILL QD
     Route: 064
     Dates: start: 201010
  4. FOLIC ACID [Concomitant]
     Indication: PREGNANCY
     Route: 064
     Dates: start: 201010
  5. PROGESTERONE [Concomitant]
     Route: 064
     Dates: start: 20101222, end: 20110123

REACTIONS (4)
  - Premature baby [Unknown]
  - Retinopathy of prematurity [Unknown]
  - Slow speech [Recovered/Resolved]
  - Foetal exposure during pregnancy [Recovered/Resolved]
